FAERS Safety Report 9964179 (Version 2)
Quarter: 2014Q2

REPORT INFORMATION
  Report Type: Report from Study
  Country: DE (occurrence: DE)
  Receive Date: 20140305
  Receipt Date: 20140417
  Transmission Date: 20141212
  Serious: No
  Sender: FDA-Public Use
  Company Number: DE-INCYTE CORPORATION-2014IN000476

PATIENT
  Sex: Female

DRUGS (7)
  1. INCB018424 [Suspect]
     Indication: MYELOFIBROSIS
     Dosage: 40 MG, PER DAY
     Route: 048
     Dates: start: 20130426, end: 20130720
  2. MARCUMAR [Concomitant]
  3. BISOPROLOL [Concomitant]
  4. RIFUN [Concomitant]
  5. ENAHEXAL                           /00574902/ [Concomitant]
  6. ZOSTEX [Concomitant]
     Dosage: UNK
     Dates: start: 20130721
  7. TRAMADOL [Concomitant]
     Dosage: UNK
     Dates: start: 20130722

REACTIONS (1)
  - Gilbert^s syndrome [Not Recovered/Not Resolved]
